FAERS Safety Report 8266062-9 (Version None)
Quarter: 2012Q2

REPORT INFORMATION
  Report Type: 
  Country: None (occurrence: None)
  Receive Date: 20120406
  Receipt Date: 20120329
  Transmission Date: 20120825
  Serious: Yes (Other)
  Sender: FDA-Public Use
  Company Number: US-US-EMD SERONO, INC.-7020774

PATIENT
  Sex: Female
  Weight: 102 kg

DRUGS (4)
  1. LISINOPRIL [Concomitant]
     Indication: BLOOD PRESSURE
  2. REBIF [Suspect]
     Indication: MULTIPLE SCLEROSIS
     Route: 058
     Dates: start: 20040607
  3. NAPROSYN [Concomitant]
     Indication: SPINAL OSTEOARTHRITIS
  4. FLEXERIL [Concomitant]
     Indication: MUSCLE SPASMS

REACTIONS (3)
  - SARCOIDOSIS [None]
  - OPTIC NEURITIS [None]
  - GLAUCOMA [None]
